FAERS Safety Report 18299766 (Version 1)
Quarter: 2020Q3

REPORT INFORMATION
  Report Type: Report from Study
  Country: US (occurrence: US)
  Receive Date: 20200922
  Receipt Date: 20200922
  Transmission Date: 20201103
  Serious: Yes (Other)
  Sender: FDA-Public Use
  Company Number: US-BEH-2020122645

PATIENT
  Age: 37 Year
  Sex: Female

DRUGS (2)
  1. HAEGARDA [Suspect]
     Active Substance: HUMAN C1-ESTERASE INHIBITOR
     Indication: PROPHYLAXIS
  2. HAEGARDA [Suspect]
     Active Substance: HUMAN C1-ESTERASE INHIBITOR
     Indication: HEREDITARY ANGIOEDEMA
     Dosage: 4000 INTERNATIONAL UNIT, BIW, EVERY 3?4 DAYS
     Route: 058
     Dates: start: 202008, end: 202008

REACTIONS (4)
  - Fatigue [Recovered/Resolved]
  - Swelling [Recovered/Resolved]
  - Hereditary angioedema [Recovered/Resolved]
  - Dizziness [Recovered/Resolved]

NARRATIVE: CASE EVENT DATE: 202008
